FAERS Safety Report 6821181-6 (Version None)
Quarter: 2010Q3

REPORT INFORMATION
  Report Type: 
  Country: None (occurrence: None)
  Receive Date: 20100707
  Receipt Date: 20080226
  Transmission Date: 20110219
  Serious: No
  Sender: FDA-Public Use
  Company Number: US-PFIZER INC-2008019149

PATIENT
  Sex: Female

DRUGS (4)
  1. ZOLOFT [Suspect]
     Indication: ANXIETY
     Dates: start: 20080107
  2. ZOLOFT [Suspect]
     Indication: DEPRESSION
  3. SERTRALINE [Suspect]
     Indication: ANXIETY
     Dates: start: 20080107
  4. SERTRALINE [Suspect]
     Indication: DEPRESSION

REACTIONS (1)
  - YAWNING [None]
